FAERS Safety Report 8854045 (Version 1)
Quarter: 2012Q4

REPORT INFORMATION
  Report Type: Spontaneous
  Country: US (occurrence: None)
  Receive Date: 20121019
  Receipt Date: 20121019
  Transmission Date: 20130627
  Serious: No
  Sender: FDA-Public Use
  Company Number: None

PATIENT
  Age: 14 Year
  Weight: 48.08 kg

DRUGS (1)
  1. EPIDUO [Suspect]
     Indication: ACNE
     Route: 061
     Dates: start: 20120922, end: 20120930

REACTIONS (4)
  - Facial pain [None]
  - Eyelid pain [None]
  - Swelling face [None]
  - Eyelid oedema [None]
